FAERS Safety Report 7364689-X (Version None)
Quarter: 2011Q1

REPORT INFORMATION
  Report Type: 
  Country: None (occurrence: None)
  Receive Date: 20110321
  Receipt Date: 20110314
  Transmission Date: 20110831
  Serious: Yes (Death, Life-Threatening, Hospitalization, Other)
  Sender: FDA-Public Use
  Company Number: MY-GENZYME-MOZO-1000359

PATIENT
  Sex: Male
  Weight: 65 kg

DRUGS (7)
  1. MOZOBIL [Suspect]
     Indication: MULTIPLE MYELOMA
  2. ZOLEDRONIC ACID [Concomitant]
     Indication: PRODUCT USED FOR UNKNOWN INDICATION
     Dosage: 4 MG, UNK
     Route: 042
  3. AZITHROMYCIN [Concomitant]
     Indication: PNEUMONIA
     Dosage: 500 MG, QD
     Route: 048
     Dates: start: 20091015, end: 20091021
  4. FILGRASTIM [Concomitant]
     Indication: HAEMATOPOIETIC STEM CELL MOBILISATION
  5. THALIDOMIDE [Concomitant]
     Indication: PRODUCT USED FOR UNKNOWN INDICATION
  6. MOZOBIL [Suspect]
     Indication: HAEMATOPOIETIC STEM CELL MOBILISATION
     Dosage: 0.85 ML, UNK
     Route: 065
     Dates: start: 20091102, end: 20091105
  7. AUGMENTIN '125' [Concomitant]
     Indication: PNEUMONIA
     Dosage: 1.2 G, TID
     Route: 042
     Dates: start: 20091015, end: 20091021

REACTIONS (9)
  - CARDIOGENIC SHOCK [None]
  - CARDIAC AMYLOIDOSIS [None]
  - NEUROPATHY PERIPHERAL [None]
  - RENAL IMPAIRMENT [None]
  - MYELOMA RECURRENCE [None]
  - COGNITIVE DISORDER [None]
  - PLEURAL HAEMORRHAGE [None]
  - THROMBOCYTOPENIA [None]
  - PNEUMONIA [None]
